FAERS Safety Report 9366722 (Version 2)
Quarter: 2013Q3

REPORT INFORMATION
  Report Type: Spontaneous
  Country: FR (occurrence: None)
  Receive Date: 20130620
  Receipt Date: 20130705
  Transmission Date: 20140515
  Serious: Yes (Hospitalization)
  Sender: FDA-Public Use
  Company Number: SP06748

PATIENT
  Age: 50 Year
  Sex: Male

DRUGS (2)
  1. OSMOPREP [Suspect]
     Indication: BOWEL PREPARATION
     Route: 048
     Dates: start: 20130602, end: 20130602
  2. INIPOMP [Concomitant]

REACTIONS (4)
  - Abdominal pain [None]
  - Rectal haemorrhage [None]
  - Colitis ischaemic [None]
  - Intestinal haematoma [None]
